FAERS Safety Report 4344408-1 (Version None)
Quarter: 2004Q2

REPORT INFORMATION
  Report Type: 
  Country: None (occurrence: None)
  Receive Date: 20040421
  Receipt Date: 20040421
  Transmission Date: 20050107
  Serious: Yes (Hospitalization)
  Sender: FDA-Public Use
  Company Number: None

PATIENT
  Age: 85 Year
  Sex: Female
  Weight: 59.6934 kg

DRUGS (6)
  1. PHENYTOIN [Suspect]
     Indication: CONVULSION
     Dosage: 400 MG PO DAILY [CHRONIC]
     Route: 048
  2. LASIX [Concomitant]
  3. CAPTOPRIL [Concomitant]
  4. MACROBID [Concomitant]
  5. SPIRONOLACTONE [Concomitant]
  6. PROTONIX [Concomitant]

REACTIONS (4)
  - ASTHENIA [None]
  - DRUG LEVEL INCREASED [None]
  - MYOCARDIAL INFARCTION [None]
  - PALLOR [None]
